FAERS Safety Report 17560448 (Version 2)
Quarter: 2020Q2

REPORT INFORMATION
  Report Type: Spontaneous
  Country: SE (occurrence: SE)
  Receive Date: 20200319
  Receipt Date: 20200522
  Transmission Date: 20200713
  Serious: Yes (Hospitalization)
  Sender: FDA-Public Use
  Company Number: NVSC2020SE078842

PATIENT
  Age: 23 Year
  Sex: Female
  Weight: 75 kg

DRUGS (3)
  1. TREO [Concomitant]
     Active Substance: ASPIRIN\CAFFEINE
     Indication: PRODUCT USED FOR UNKNOWN INDICATION
     Dosage: UNK
     Route: 065
     Dates: start: 20200228, end: 20200228
  2. DICLOFENAC [Suspect]
     Active Substance: DICLOFENAC
     Indication: TOOTH EXTRACTION
     Dosage: UNK
     Route: 065
     Dates: end: 2020
  3. DICLOFENAC [Suspect]
     Active Substance: DICLOFENAC
     Indication: STOMATITIS
     Dosage: UNK
     Route: 065
     Dates: start: 20200228, end: 20200228

REACTIONS (5)
  - Nausea [Recovering/Resolving]
  - Chest discomfort [Recovering/Resolving]
  - Diarrhoea [Recovering/Resolving]
  - Abdominal pain upper [Recovering/Resolving]
  - Insomnia [Recovering/Resolving]

NARRATIVE: CASE EVENT DATE: 20200228
